FAERS Safety Report 6445504-5 (Version None)
Quarter: 2009Q4

REPORT INFORMATION
  Report Type: 
  Country: None (occurrence: None)
  Receive Date: 20091118
  Receipt Date: 20090914
  Transmission Date: 20100525
  Serious: Yes (Hospitalization, Other)
  Sender: FDA-Public Use
  Company Number: GB-PFIZER INC-2008068064

PATIENT
  Age: 14 Year
  Sex: Male

DRUGS (4)
  1. DICLOFENAC SODIUM [Suspect]
     Indication: JUVENILE ARTHRITIS
     Dosage: 75 MG, 2X/DAY
  2. PREDNISOLONE [Concomitant]
     Indication: JUVENILE ARTHRITIS
  3. METHOTREXATE SODIUM [Concomitant]
     Indication: JUVENILE ARTHRITIS
     Dosage: 15 MG/M2, UNK
  4. ACYCLOVIR [Concomitant]
     Indication: HERPES ZOSTER
     Route: 042

REACTIONS (6)
  - BLOOD CREATININE INCREASED [None]
  - BLOOD UREA INCREASED [None]
  - DEHYDRATION [None]
  - HERPES ZOSTER [None]
  - RENAL FAILURE ACUTE [None]
  - VOMITING [None]
